FAERS Safety Report 4453916-4 (Version None)
Quarter: 2004Q3

REPORT INFORMATION
  Report Type: 
  Country: None (occurrence: None)
  Receive Date: 20040826
  Receipt Date: 20040427
  Transmission Date: 20050211
  Serious: No
  Sender: FDA-Public Use
  Company Number: WAES 0404USA02321

PATIENT
  Age: 71 Year
  Sex: Female

DRUGS (5)
  1. ZETIA [Suspect]
     Indication: BLOOD CHOLESTEROL INCREASED
     Dosage: 10 MG/PO
     Route: 048
     Dates: start: 20040406
  2. CITRACAL [Concomitant]
  3. FOSAMAX [Concomitant]
  4. ATENOLOL [Concomitant]
  5. TRIAMTERENE [Concomitant]

REACTIONS (3)
  - CHOKING SENSATION [None]
  - DYSPHAGIA [None]
  - SENSATION OF FOREIGN BODY [None]
